FAERS Safety Report 5661595-3 (Version None)
Quarter: 2008Q1

REPORT INFORMATION
  Report Type: 
  Country: None (occurrence: None)
  Receive Date: 20080312
  Receipt Date: 20080310
  Transmission Date: 20080703
  Serious: Yes (Death, Other)
  Sender: FDA-Public Use
  Company Number: DE-AVENTIS-200810356DE

PATIENT
  Age: 73 Year
  Sex: Female

DRUGS (1)
  1. ARAVA [Suspect]
     Indication: RHEUMATOID ARTHRITIS
     Dosage: DOSE: UNKNOWN
     Route: 048
     Dates: end: 20080201

REACTIONS (4)
  - ACCIDENTAL OVERDOSE [None]
  - MULTI-ORGAN FAILURE [None]
  - PANCYTOPENIA [None]
  - SEPSIS [None]
